FAERS Safety Report 8875952 (Version 1)
Quarter: 2012Q4

REPORT INFORMATION
  Report Type: 
  Country: GB (occurrence: GB)
  Receive Date: 20121023
  Receipt Date: 20121023
  Transmission Date: 20130627
  Serious: Yes (Other)
  Sender: FDA-Public Use
  Company Number: GB-VIIV HEALTHCARE LIMITED-B0839597A

PATIENT
  Age: 50 Year
  Sex: Male

DRUGS (3)
  1. CELSENTRI [Suspect]
     Indication: HIV INFECTION
     Dosage: 150MG Per day
     Route: 065
     Dates: start: 201208
  2. PREZISTA [Concomitant]
  3. RITONAVIR [Concomitant]

REACTIONS (1)
  - Myocardial infarction [Unknown]
